FAERS Safety Report 16666691 (Version 1)
Quarter: 2019Q3

REPORT INFORMATION
  Report Type: Spontaneous
  Country: US (occurrence: US)
  Receive Date: 20190805
  Receipt Date: 20190805
  Transmission Date: 20191004
  Serious: No
  Sender: FDA-Public Use
  Company Number: US-ASTRAZENECA-2019SF10578

PATIENT
  Age: 82 Year
  Sex: Male

DRUGS (1)
  1. RHINOCORT [Suspect]
     Active Substance: BUDESONIDE
     Indication: ALLERGIC SINUSITIS
     Dosage: 2 DF,2 SPRAYS IN EACH NOSTRIL
     Route: 045

REACTIONS (5)
  - Drug ineffective [Unknown]
  - Anxiety [Unknown]
  - Dyspnoea [Unknown]
  - Sinus congestion [Unknown]
  - Application site dryness [Unknown]
